FAERS Safety Report 10237489 (Version 1)
Quarter: 2014Q2

REPORT INFORMATION
  Report Type: Spontaneous
  Country: US (occurrence: US)
  Receive Date: 20140615
  Receipt Date: 20140615
  Transmission Date: 20141212
  Serious: Yes (Other)
  Sender: FDA-Public Use
  Company Number: US-BRISTOL-MYERS SQUIBB COMPANY-20968004

PATIENT
  Age: 45 Year
  Sex: Female

DRUGS (1)
  1. ABILIFY [Suspect]
     Indication: DEPRESSION
     Dosage: STARTED OUT ON ABILIFY 5MG FOR ONE WEEK

REACTIONS (3)
  - Multiple sclerosis [Unknown]
  - Sexual dysfunction [Unknown]
  - Drug ineffective [Unknown]
